FAERS Safety Report 9970959 (Version 1)
Quarter: 2014Q1

REPORT INFORMATION
  Report Type: Spontaneous
  Country: US (occurrence: None)
  Receive Date: 20140305
  Receipt Date: 20140305
  Transmission Date: 20141002
  Serious: Yes (Other)
  Sender: FDA-Public Use
  Company Number: None

PATIENT
  Age: 69 Year
  Sex: Male
  Weight: 88.91 kg

DRUGS (1)
  1. ATORVASTATIN [Suspect]
     Indication: BLOOD CHOLESTEROL INCREASED
     Dosage: 1 PILL/DAY
     Route: 048

REACTIONS (5)
  - Musculoskeletal pain [None]
  - Spinal pain [None]
  - Abdominal pain upper [None]
  - Movement disorder [None]
  - Insomnia [None]
